FAERS Safety Report 12669387 (Version 1)
Quarter: 2016Q3

REPORT INFORMATION
  Report Type: Spontaneous
  Country: US (occurrence: US)
  Receive Date: 20160819
  Receipt Date: 20160819
  Transmission Date: 20161109
  Serious: No
  Sender: FDA-Public Use
  Company Number: US-LUNDBECK-DKLU2015726

PATIENT
  Age: 79 Year
  Sex: Male

DRUGS (6)
  1. NORTHERA [Suspect]
     Active Substance: DROXIDOPA
     Indication: ORTHOSTATIC HYPOTENSION
     Route: 065
  2. NORTHERA [Suspect]
     Active Substance: DROXIDOPA
     Dosage: OVERDOSE: TOTAL 2000MG
     Route: 065
     Dates: start: 2015
  3. NORTHERA [Suspect]
     Active Substance: DROXIDOPA
     Dosage: OVERDOSE: TOTAL 2000MG
     Route: 065
     Dates: start: 2015
  4. NORTHERA [Suspect]
     Active Substance: DROXIDOPA
     Dosage: OVERDOSE: TOTAL 2000MG
     Route: 065
     Dates: start: 2015
  5. AVODART [Concomitant]
     Active Substance: DUTASTERIDE
     Indication: PROSTATOMEGALY
     Route: 065
  6. NORTHERA [Suspect]
     Active Substance: DROXIDOPA
     Dosage: OVERDOSE: TOTAL 2000MG
     Route: 065
     Dates: start: 2015

REACTIONS (3)
  - Overdose [Unknown]
  - Blood urine present [Recovered/Resolved]
  - Blood pressure orthostatic decreased [Not Recovered/Not Resolved]

NARRATIVE: CASE EVENT DATE: 20160621
